FAERS Safety Report 4628126-8 (Version None)
Quarter: 2005Q2

REPORT INFORMATION
  Report Type: 
  Country: None (occurrence: None)
  Receive Date: 20050406
  Receipt Date: 20050331
  Transmission Date: 20051028
  Serious: Yes (Death)
  Sender: FDA-Public Use
  Company Number: 200511653GDDC

PATIENT
  Age: 76 Year
  Sex: Male

DRUGS (21)
  1. AMOXICILLIN [Suspect]
     Dosage: 1500MG UNKNOWN
     Route: 042
  2. METRONIDAZOLE [Suspect]
     Dosage: 1500MG UNKNOWN
     Route: 042
  3. IKOREL [Suspect]
     Indication: ANGINA PECTORIS
     Dosage: 30MG TWICE PER DAY
     Route: 048
     Dates: start: 20030701, end: 20050313
  4. ENALAPRIL [Suspect]
     Route: 065
  5. ASPIRIN [Concomitant]
     Dosage: 75MG PER DAY
     Route: 048
  6. CLOPIDOGREL [Concomitant]
     Dosage: 75MG PER DAY
     Route: 048
  7. ANGITIL [Concomitant]
     Dosage: 240MG PER DAY
     Route: 048
  8. LISINOPRIL [Concomitant]
     Dosage: 10MG PER DAY
     Route: 048
  9. DIGOXIN [Concomitant]
     Dosage: 250MCG PER DAY
     Route: 048
  10. IPRATROPIUM BROMIDE [Concomitant]
     Dosage: 160MCG PER DAY
  11. BECLOMETHASONE DIPROPIONATE [Concomitant]
  12. LANSOPRAZOLE [Concomitant]
     Dosage: 30MG PER DAY
     Route: 048
  13. FUROSEMIDE [Concomitant]
     Dosage: 40MG PER DAY
     Route: 048
  14. DIAMORPHINE [Concomitant]
     Dosage: 5MG AS REQUIRED
     Route: 042
  15. METOCLOPRAMIDE [Concomitant]
     Dosage: 10MG AS REQUIRED
     Route: 042
  16. ALBUTEROL [Concomitant]
     Dosage: 200MCG AS REQUIRED
  17. PARACETAMOL [Concomitant]
     Dosage: 1000MG AS REQUIRED
     Route: 048
  18. ENOXAPARIN SODIUM [Concomitant]
     Route: 065
  19. METRONIDAZOLE [Concomitant]
     Dosage: 1500MG PER DAY
     Route: 048
  20. AMOXICILLIN [Concomitant]
     Dosage: 1500MG PER DAY
     Route: 048
  21. NICORANDIL [Concomitant]

REACTIONS (2)
  - MYOCARDIAL INFARCTION [None]
  - TONGUE ULCERATION [None]
